FAERS Safety Report 5759793-3 (Version None)
Quarter: 2008Q2

REPORT INFORMATION
  Report Type: 
  Country: None (occurrence: None)
  Receive Date: 20080605
  Receipt Date: 20080529
  Transmission Date: 20081010
  Serious: Yes (Hospitalization)
  Sender: FDA-Public Use
  Company Number: B0523322A

PATIENT
  Age: 73 Year
  Sex: Female

DRUGS (3)
  1. ZELITREX [Suspect]
     Route: 048
     Dates: start: 20070301, end: 20080426
  2. KENZEN [Concomitant]
     Route: 048
     Dates: start: 19980101
  3. VITABACT [Concomitant]

REACTIONS (21)
  - ALANINE AMINOTRANSFERASE INCREASED [None]
  - ALPHA 2 GLOBULIN INCREASED [None]
  - ANOREXIA [None]
  - ASPARTATE AMINOTRANSFERASE INCREASED [None]
  - BLOOD ALKALINE PHOSPHATASE INCREASED [None]
  - BLOOD BILIRUBIN INCREASED [None]
  - CHROMATURIA [None]
  - CYTOLYTIC HEPATITIS [None]
  - GAMMA-GLUTAMYLTRANSFERASE INCREASED [None]
  - GENERAL PHYSICAL HEALTH DETERIORATION [None]
  - HAEMATURIA [None]
  - HEPATIC ENZYME ABNORMAL [None]
  - HYPERTENSION [None]
  - JAUNDICE [None]
  - LEUKOPENIA [None]
  - NAUSEA [None]
  - PAROXYSMAL NOCTURNAL HAEMOGLOBINURIA [None]
  - PORPHYRIA [None]
  - SPLENOMEGALY [None]
  - THROMBOCYTOPENIA [None]
  - VOMITING [None]
